FAERS Safety Report 5460661-5 (Version None)
Quarter: 2007Q3

REPORT INFORMATION
  Report Type: 
  Country: None (occurrence: None)
  Receive Date: 20070919
  Receipt Date: 20070918
  Transmission Date: 20080115
  Serious: Yes (Hospitalization)
  Sender: FDA-Public Use
  Company Number: A0679928A

PATIENT
  Age: 48 Year
  Sex: Female

DRUGS (1)
  1. ALLI [Suspect]
     Indication: WEIGHT LOSS DIET
     Route: 048
     Dates: start: 20070101, end: 20070909

REACTIONS (12)
  - ABDOMINAL PAIN UPPER [None]
  - CRYING [None]
  - EYE PAIN [None]
  - FAECES PALE [None]
  - HEADACHE [None]
  - INFUSION SITE SWELLING [None]
  - INTESTINAL OBSTRUCTION [None]
  - OCULAR HYPERAEMIA [None]
  - PHARMACEUTICAL PRODUCT COMPLAINT [None]
  - POST PROCEDURAL COMPLICATION [None]
  - RECTAL TENESMUS [None]
  - VISUAL ACUITY REDUCED [None]
